FAERS Safety Report 7153260-0 (Version None)
Quarter: 2010Q4

REPORT INFORMATION
  Report Type: 
  Country: None (occurrence: None)
  Receive Date: 20101130
  Receipt Date: 20101020
  Transmission Date: 20110411
  Serious: Yes (Life-Threatening)
  Sender: FDA-Public Use
  Company Number: 54973

PATIENT
  Age: 19 Month
  Sex: Male
  Weight: 13.6079 kg

DRUGS (1)
  1. HYLAND'S TEETHING TABLETS [Suspect]
     Indication: TEETHING
     Dosage: 3 TABS 1-2 X A DAY

REACTIONS (1)
  - FEBRILE CONVULSION [None]
